FAERS Safety Report 9819382 (Version 1)
Quarter: 2014Q1

REPORT INFORMATION
  Report Type: Spontaneous
  Country: GB (occurrence: None)
  Receive Date: 20140113
  Receipt Date: 20140113
  Transmission Date: 20141002
  Serious: Yes (Other)
  Sender: FDA-Public Use
  Company Number: AUR-APL-2014-00135

PATIENT
  Age: 71 Year
  Sex: Female

DRUGS (2)
  1. SIMVASTATIN (SIMVASTATIN) [Suspect]
     Indication: PRODUCT USED FOR UNKNOWN INDICATION
     Dosage: 40 MG (40MG, 1 IN 1 D), UNKNOWN
  2. ATORVASTATIN (ATORVASTATIN) [Suspect]
     Indication: PRODUCT USED FOR UNKNOWN INDICATION
     Dosage: 20 MG (20MG, 1 IN 1 D), UNKNOWN

REACTIONS (7)
  - Abasia [None]
  - Gastrooesophageal reflux disease [None]
  - Fatigue [None]
  - Confusional state [None]
  - Memory impairment [None]
  - Insomnia [None]
  - Gingival erosion [None]
